FAERS Safety Report 5560460-X (Version None)
Quarter: 2007Q4

REPORT INFORMATION
  Report Type: 
  Country: None (occurrence: None)
  Receive Date: 20071215
  Receipt Date: 20071109
  Transmission Date: 20080405
  Serious: No
  Sender: FDA-Public Use
  Company Number: US-ABBOTT-07P-163-0424231-00

PATIENT
  Sex: Female
  Weight: 74.91 kg

DRUGS (2)
  1. HUMIRA [Suspect]
     Indication: CROHN'S DISEASE
     Route: 058
     Dates: start: 20071102, end: 20071102
  2. HUMIRA [Suspect]
     Route: 058
     Dates: start: 20071116, end: 20071116

REACTIONS (2)
  - ARTHRALGIA [None]
  - BACK PAIN [None]
